FAERS Safety Report 13541364 (Version 1)
Quarter: 2017Q2

REPORT INFORMATION
  Report Type: Spontaneous
  Country: US (occurrence: US)
  Receive Date: 20170512
  Receipt Date: 20170512
  Transmission Date: 20170830
  Serious: No
  Sender: FDA-Public Use
  Company Number: US-SA-2016SA180741

PATIENT
  Age: 76 Year
  Sex: Male
  Weight: 66.2 kg

DRUGS (5)
  1. APIDRA SOLOSTAR [Suspect]
     Active Substance: INSULIN GLULISINE
     Indication: TYPE 2 DIABETES MELLITUS
     Dosage: DOSE-SLIDING SCALE
     Route: 065
  2. LANTUS [Suspect]
     Active Substance: INSULIN GLARGINE
     Dosage: DOSE AND DAILY DOSE-SLIDING SCALE
     Route: 065
  3. SOLOSTAR [Concomitant]
     Active Substance: DEVICE
  4. LANTUS [Suspect]
     Active Substance: INSULIN GLARGINE
     Dosage: DOSE AND DAILY DOSE-SLIDING SCALE
     Route: 065
     Dates: start: 2007
  5. APIDRA SOLOSTAR [Suspect]
     Active Substance: INSULIN GLULISINE
     Indication: TYPE 2 DIABETES MELLITUS
     Dosage: DOSE-SLIDING SCALE
     Route: 065
     Dates: start: 2007

REACTIONS (1)
  - Visual impairment [Unknown]
